FAERS Safety Report 6115934-X (Version None)
Quarter: 2009Q1

REPORT INFORMATION
  Report Type: 
  Country: None (occurrence: None)
  Receive Date: 20090311
  Receipt Date: 20090306
  Transmission Date: 20090719
  Serious: Yes (Death, Other)
  Sender: FDA-Public Use
  Company Number: 2009JP001297

PATIENT
  Age: 39 Year
  Sex: Female

DRUGS (6)
  1. PROGRAF [Suspect]
     Indication: RENAL TRANSPLANT
  2. MYCOPHENOLATE MOFETIL [Suspect]
     Indication: RENAL TRANSPLANT
  3. BASILIXIMAB (BASILIXIMAB) FORMULATION UNKNOWN [Concomitant]
  4. METHYLPREDNISOLON (METHYLPREDNISOLONE) FOMULATION  UNKNOWN [Concomitant]
  5. H2 BLOCKER (CIMETIDINE HYDROCHLORIDE) FORMULATION [Concomitant]
  6. SULFAMETHOXAZOLE AND TRIMETHOPRIM (SULFAMETHOXAZOLE, TRIMETHOPRIM) FOR [Concomitant]

REACTIONS (14)
  - ABDOMINAL DISTENSION [None]
  - ANAEMIA [None]
  - BLOOD LACTATE DEHYDROGENASE INCREASED [None]
  - CARDIOVASCULAR DISORDER [None]
  - DEPRESSED LEVEL OF CONSCIOUSNESS [None]
  - DISSEMINATED INTRAVASCULAR COAGULATION [None]
  - GASTROINTESTINAL HAEMORRHAGE [None]
  - GENERAL PHYSICAL HEALTH DETERIORATION [None]
  - HEPATIC FUNCTION ABNORMAL [None]
  - LARGE INTESTINAL ULCER [None]
  - MELAENA [None]
  - MULTI-ORGAN DISORDER [None]
  - NECROSIS [None]
  - RESPIRATORY DISTRESS [None]
